FAERS Safety Report 4604107-5 (Version None)
Quarter: 2005Q1

REPORT INFORMATION
  Report Type: 
  Country: None (occurrence: None)
  Receive Date: 20050308
  Receipt Date: 20050308
  Transmission Date: 20050727
  Serious: Yes (Other)
  Sender: FDA-Public Use
  Company Number: None

PATIENT
  Age: 34 Year
  Sex: Male
  Weight: 73.4827 kg

DRUGS (1)
  1. FLUOXETINE [Suspect]
     Dosage: 20 MG ORALLY DAILY
     Route: 048

REACTIONS (2)
  - AGITATION [None]
  - INSOMNIA [None]
